FAERS Safety Report 8887842 (Version 1)
Quarter: 2012Q4

REPORT INFORMATION
  Report Type: 
  Country: US (occurrence: US)
  Receive Date: 20121106
  Receipt Date: 20121106
  Transmission Date: 20130627
  Serious: No
  Sender: FDA-Public Use
  Company Number: US-VERTEX PHARMACEUTICAL INC.-2012-024050

PATIENT
  Age: 51 Year
  Sex: Male

DRUGS (8)
  1. TELAPREVIR [Suspect]
     Indication: HEPATITIS C
     Dosage: 750 mg, qd
     Route: 048
  2. PEGASYS [Suspect]
     Indication: HEPATITIS C
     Dosage: 180 ?g, UNK
  3. RIBAPAK [Suspect]
     Indication: HEPATITIS C
     Dosage: 1200 UNK, qd
  4. SEROQUEL [Concomitant]
     Dosage: 400 mg, UNK
  5. LITHIUM CARBON [Concomitant]
     Dosage: 600 mg, UNK
  6. PROPRANOLOL [Concomitant]
     Dosage: 120 mg, UNK
  7. ENALAPRIL [Concomitant]
     Dosage: 20 mg, UNK
  8. TEMAZEPAM [Concomitant]
     Dosage: 30 mg, UNK

REACTIONS (1)
  - Injection site reaction [Unknown]
